FAERS Safety Report 14587212 (Version 3)
Quarter: 2018Q3

REPORT INFORMATION
  Report Type: Spontaneous
  Country: IT (occurrence: IT)
  Receive Date: 20180301
  Receipt Date: 20180809
  Transmission Date: 20181010
  Serious: Yes (Death)
  Sender: FDA-Public Use
  Company Number: IT-PFIZER INC-2018084771

PATIENT
  Age: 45 Year
  Sex: Female

DRUGS (6)
  1. REYATAZ [Suspect]
     Active Substance: ATAZANAVIR SULFATE
     Indication: HIV INFECTION
     Dosage: UNK
  2. VIREAD [Concomitant]
     Active Substance: TENOFOVIR DISOPROXIL FUMARATE
     Indication: HIV INFECTION
     Dosage: UNK
  3. IBRANCE [Suspect]
     Active Substance: PALBOCICLIB
     Indication: BREAST CANCER METASTATIC
     Dosage: 75 MG, 3 CYCLES
     Dates: start: 20170609, end: 20170804
  4. LETROZOLE. [Suspect]
     Active Substance: LETROZOLE
     Dosage: 3 CYCLES
     Dates: start: 20170609
  5. RETROVIR [Concomitant]
     Active Substance: ZIDOVUDINE
     Indication: HIV INFECTION
     Dosage: UNK
  6. NORVIR [Concomitant]
     Active Substance: RITONAVIR
     Indication: HIV INFECTION
     Dosage: UNK

REACTIONS (1)
  - Neoplasm progression [Fatal]

NARRATIVE: CASE EVENT DATE: 20170718
